FAERS Safety Report 9113024 (Version 1)
Quarter: 2013Q1

REPORT INFORMATION
  Report Type: Report from Study
  Country: DE (occurrence: DE)
  Receive Date: 20130211
  Receipt Date: 20130211
  Transmission Date: 20140127
  Serious: Yes (Other)
  Sender: FDA-Public Use
  Company Number: DE-ROCHE-1189398

PATIENT
  Age: 52 Year
  Sex: Female

DRUGS (3)
  1. HERCEPTIN [Suspect]
     Indication: BREAST CANCER METASTATIC
     Route: 065
  2. HERCEPTIN [Suspect]
     Route: 065
  3. PERTUZUMAB [Concomitant]
     Indication: BREAST CANCER
     Route: 065

REACTIONS (2)
  - Hepatitis [Unknown]
  - Aspartate aminotransferase increased [Unknown]
